FAERS Safety Report 5923220-3 (Version None)
Quarter: 2008Q4

REPORT INFORMATION
  Report Type: 
  Country: None (occurrence: None)
  Receive Date: 20081015
  Receipt Date: 20081008
  Transmission Date: 20090506
  Serious: Yes (Hospitalization)
  Sender: FDA-Public Use
  Company Number: 2008BI025179

PATIENT
  Age: 43 Year
  Sex: Female

DRUGS (2)
  1. TYSABRI [Suspect]
     Indication: MULTIPLE SCLEROSIS
     Dosage: 300 MG; QW; IM
     Route: 030
     Dates: start: 20070719
  2. AVONEX [Concomitant]

REACTIONS (2)
  - CONVERSION DISORDER [None]
  - TREMOR [None]
